FAERS Safety Report 9036492 (Version 1)
Quarter: 2013Q1

REPORT INFORMATION
  Report Type: Spontaneous
  Country: US (occurrence: None)
  Receive Date: 20130117
  Receipt Date: 20130117
  Transmission Date: 20140127
  Serious: Yes (Other)
  Sender: FDA-Public Use
  Company Number: None

PATIENT
  Age: 45 Year
  Sex: Female
  Weight: 86.18 kg

DRUGS (1)
  1. BACTRIM [Suspect]
     Indication: OTITIS EXTERNA
     Dosage: 20 PILLS TAKEN 1, 2X DAILY FOR 10 D, ORAL
     Route: 048
     Dates: start: 20121205, end: 20121216

REACTIONS (7)
  - Rash [None]
  - Drug ineffective [None]
  - Blister [None]
  - Wound secretion [None]
  - Pruritus [None]
  - Swelling face [None]
  - Hypersensitivity [None]
